FAERS Safety Report 6622577-8 (Version None)
Quarter: 2010Q1

REPORT INFORMATION
  Report Type: 
  Country: None (occurrence: None)
  Receive Date: 20100310
  Receipt Date: 20100113
  Transmission Date: 20100710
  Serious: No
  Sender: FDA-Public Use
  Company Number: US-BIOGENIDEC-2010BI001226

PATIENT
  Age: 62 Year
  Sex: Female

DRUGS (2)
  1. AVONEX [Suspect]
     Indication: MULTIPLE SCLEROSIS
     Route: 030
     Dates: start: 20030618, end: 20050101
  2. AVONEX [Suspect]
     Route: 030
     Dates: start: 20050101

REACTIONS (4)
  - BALANCE DISORDER [None]
  - FALL [None]
  - HEAD INJURY [None]
  - HEADACHE [None]
